FAERS Safety Report 10729325 (Version 1)
Quarter: 2015Q1

REPORT INFORMATION
  Report Type: Spontaneous
  Country: US (occurrence: None)
  Receive Date: 20150120
  Receipt Date: 20150120
  Transmission Date: 20150721
  Serious: No
  Sender: FDA-Public Use
  Company Number: None

PATIENT
  Age: 52 Year
  Sex: Female
  Weight: 111.13 kg

DRUGS (1)
  1. XARELTO [Suspect]
     Active Substance: RIVAROXABAN
     Indication: ATRIAL FIBRILLATION
     Dosage: 1 PILL
     Route: 054
     Dates: start: 20140531, end: 20141112

REACTIONS (5)
  - Haemoptysis [None]
  - Crying [None]
  - Renal pain [None]
  - Headache [None]
  - Haemorrhage [None]

NARRATIVE: CASE EVENT DATE: 20141210
